FAERS Safety Report 16197153 (Version 8)
Quarter: 2019Q3

REPORT INFORMATION
  Report Type: Spontaneous
  Country: US (occurrence: US)
  Receive Date: 20190415
  Receipt Date: 20190918
  Transmission Date: 20191004
  Serious: No
  Sender: FDA-Public Use
  Company Number: US-PFIZER INC-2019156150

PATIENT
  Age: 46 Year
  Sex: Female
  Weight: 45.26 kg

DRUGS (7)
  1. AMITRIPTYLINE [Concomitant]
     Active Substance: AMITRIPTYLINE
     Indication: MIGRAINE
     Dosage: UNK
  2. LYRICA [Suspect]
     Active Substance: PREGABALIN
     Indication: PAIN
     Dosage: 150 MG, DAILY
     Route: 048
  3. LYRICA [Suspect]
     Active Substance: PREGABALIN
     Indication: BACK INJURY
     Dosage: 450 MG, DAILY [150MG, 1X /DAY AND AT 300 MG (2 CAPSULES AT NIGHT)]
     Route: 048
     Dates: start: 201903
  4. LYRICA [Suspect]
     Active Substance: PREGABALIN
     Indication: BACK PAIN
  5. LYRICA [Suspect]
     Active Substance: PREGABALIN
     Indication: SPINAL OSTEOARTHRITIS
     Dosage: 450 MG, DAILY (150MG QDAY [ONCE DAILY] AND 300MG QHS [EVERY NIGHT AT BEDTIME])
     Route: 048
     Dates: start: 20190129
  6. LYRICA [Suspect]
     Active Substance: PREGABALIN
     Indication: MYALGIA
     Dosage: 150 MG, 2X/DAY
     Route: 048
     Dates: start: 201902
  7. LYRICA [Suspect]
     Active Substance: PREGABALIN
     Indication: HEADACHE
     Dosage: 450 MG, DAILY (ONE 150 MG THAT I TAKE IN THE MORNING AND ONE 300 MG THAT I TAKE AT NIGHT)

REACTIONS (4)
  - Insomnia [Unknown]
  - Drug ineffective [Recovering/Resolving]
  - Withdrawal syndrome [Unknown]
  - Feeling of body temperature change [Unknown]

NARRATIVE: CASE EVENT DATE: 2019
